FAERS Safety Report 8461903-4 (Version None)
Quarter: 2012Q2

REPORT INFORMATION
  Report Type: 
  Country: None (occurrence: None)
  Receive Date: 20120625
  Receipt Date: 20120331
  Transmission Date: 20120825
  Serious: Yes (Other)
  Sender: FDA-Public Use
  Company Number: US-UCBSA-030997

PATIENT
  Age: 54 Year
  Sex: Female
  Weight: 60 kg

DRUGS (2)
  1. CIMZIA [Suspect]
     Indication: RHEUMATOID ARTHRITIS
     Dosage: NBR OF DOSES RECIEVED: 3
     Route: 058
     Dates: start: 20110110, end: 20110110
  2. CIMZIA [Suspect]
     Dosage: NBR OF DOSES RECIEVED: 4
     Route: 058
     Dates: start: 20110221

REACTIONS (1)
  - LEFT VENTRICULAR DYSFUNCTION [None]
